FAERS Safety Report 16234222 (Version 1)
Quarter: 2019Q2

REPORT INFORMATION
  Report Type: Spontaneous
  Country: US (occurrence: US)
  Receive Date: 20190321
  Receipt Date: 20190321
  Transmission Date: 20190711
  Serious: Yes (Hospitalization)
  Sender: FDA-Public Use
  Company Number: None

PATIENT
  Age: 61 Year
  Sex: Male

DRUGS (1)
  1. TEMOZOLOMIDE 140 CAP [Suspect]
     Active Substance: TEMOZOLOMIDE
     Dates: start: 20190117

REACTIONS (1)
  - Meningitis [None]

NARRATIVE: CASE EVENT DATE: 20190128
